FAERS Safety Report 12894582 (Version 1)
Quarter: 2016Q4

REPORT INFORMATION
  Report Type: Not Available
  Country: CA (occurrence: CA)
  Receive Date: 20161028
  Receipt Date: 20161028
  Transmission Date: 20170207
  Serious: Yes (Death, Life-Threatening, Hospitalization)
  Sender: FDA-Public Use
  Company Number: CA-CELGENEUS-CAN-2016105080

PATIENT
  Age: 82 Year
  Sex: Female

DRUGS (2)
  1. DEXAMETHASONE. [Concomitant]
     Active Substance: DEXAMETHASONE
     Indication: PRODUCT USED FOR UNKNOWN INDICATION
     Route: 065
  2. REVLIMID [Suspect]
     Active Substance: LENALIDOMIDE
     Indication: PLASMA CELL MYELOMA
     Dosage: 10 MILLIGRAM
     Route: 048

REACTIONS (8)
  - Confusional state [Unknown]
  - Diarrhoea [Unknown]
  - Melaena [Unknown]
  - Vomiting [Unknown]
  - Death [Fatal]
  - Depressed level of consciousness [Unknown]
  - Platelet count decreased [Unknown]
  - Haemoglobin decreased [Unknown]
